FAERS Safety Report 17415419 (Version 2)
Quarter: 2020Q1

REPORT INFORMATION
  Report Type: Spontaneous
  Country: US (occurrence: US)
  Receive Date: 20200213
  Receipt Date: 20200303
  Transmission Date: 20200409
  Serious: No
  Sender: FDA-Public Use
  Company Number: US-SA-2020SA036458

PATIENT
  Age: 74 Year
  Sex: Male

DRUGS (1)
  1. CAPRELSA [Suspect]
     Active Substance: VANDETANIB
     Indication: THYROID CANCER
     Dosage: 200 MG, QD
     Route: 048
     Dates: start: 20200125

REACTIONS (4)
  - Weight decreased [Recovered/Resolved]
  - Blood calcitonin increased [Unknown]
  - Therapeutic response unexpected [Unknown]
  - Rash [Unknown]
